FAERS Safety Report 4707475-9 (Version None)
Quarter: 2005Q3

REPORT INFORMATION
  Report Type: 
  Country: None (occurrence: None)
  Receive Date: 20050706
  Receipt Date: 20041203
  Transmission Date: 20060218
  Serious: Yes (Other)
  Sender: FDA-Public Use
  Company Number: GB-GLAXOSMITHKLINE-B0361020A

PATIENT
  Sex: Male

DRUGS (6)
  1. PAROXETINE HYDROCHLORIDE [Suspect]
     Dosage: 20MG PER DAY
     Route: 065
     Dates: end: 20000810
  2. TRAZODONE [Concomitant]
     Dosage: 150MG AT NIGHT
     Route: 065
  3. ZOPICLONE [Concomitant]
     Dosage: 3.75MG AT NIGHT
     Route: 065
  4. BENDROFLUAZIDE [Concomitant]
     Dosage: 2.5MG IN THE MORNING
     Route: 065
  5. MIRTAZAPINE [Concomitant]
     Dosage: 30MG AT NIGHT
     Route: 065
  6. PROPRANOLOL [Concomitant]
     Dosage: 20MG THREE TIMES PER DAY
     Route: 065

REACTIONS (11)
  - AGGRESSION [None]
  - CONFUSIONAL STATE [None]
  - DISTURBANCE IN ATTENTION [None]
  - HEADACHE [None]
  - HYPERVENTILATION [None]
  - ILL-DEFINED DISORDER [None]
  - MALAISE [None]
  - PSYCHIATRIC SYMPTOM [None]
  - SLEEP DISORDER [None]
  - SOMNOLENCE [None]
  - SUICIDAL IDEATION [None]
